FAERS Safety Report 4772929-6 (Version None)
Quarter: 2005Q3

REPORT INFORMATION
  Report Type: 
  Country: None (occurrence: None)
  Receive Date: 20050916
  Receipt Date: 20050908
  Transmission Date: 20060218
  Serious: Yes (Death)
  Sender: FDA-Public Use
  Company Number: T05-ESP-02773-01

PATIENT
  Age: 91 Year
  Sex: Female

DRUGS (5)
  1. MEMANTINE HCL [Suspect]
     Indication: DEMENTIA ALZHEIMER'S TYPE
     Dates: start: 20030101, end: 20040728
  2. DIURETICS [Concomitant]
  3. HYPNNOTICS AND SEDATICES [Concomitant]
  4. ANTIDEPRESSANTS [Concomitant]
  5. DONEPEZIL HCL [Concomitant]

REACTIONS (2)
  - ASPIRATION BRONCHIAL [None]
  - RESPIRATORY TRACT INFECTION [None]
